FAERS Safety Report 4364338-9 (Version None)
Quarter: 2004Q2

REPORT INFORMATION
  Report Type: 
  Country: None (occurrence: None)
  Receive Date: 20040525
  Receipt Date: 20031112
  Transmission Date: 20050107
  Serious: No
  Sender: FDA-Public Use
  Company Number: US-BRISTOL-MYERS SQUIBB COMPANY-12433710

PATIENT
  Age: 70 Year
  Sex: Female
  Weight: 79 kg

DRUGS (9)
  1. CYTOXAN [Suspect]
     Indication: BREAST CANCER
     Route: 042
     Dates: start: 20030513, end: 20030724
  2. ADRIAMYCIN PFS [Suspect]
     Route: 042
     Dates: start: 20030513, end: 20030724
  3. ANZEMET [Concomitant]
     Indication: PREMEDICATION
  4. PROMETHAZINE HCL [Concomitant]
  5. CARDIZEM [Concomitant]
  6. XANAX [Concomitant]
  7. VITAMINS MULTIPLE [Concomitant]
  8. ZINC [Concomitant]
  9. METAMUCIL-2 [Concomitant]

REACTIONS (1)
  - FUNGAL INFECTION [None]
